FAERS Safety Report 21118161 (Version 1)
Quarter: 2022Q3

REPORT INFORMATION
  Report Type: Spontaneous
  Country: US (occurrence: None)
  Receive Date: 20220721
  Receipt Date: 20220721
  Transmission Date: 20221026
  Serious: No
  Sender: FDA-Public Use
  Company Number: None

PATIENT
  Age: 73 Year
  Sex: Male
  Weight: 83 kg

DRUGS (1)
  1. REMDESIVIR [Suspect]
     Active Substance: REMDESIVIR
     Dosage: 100 MG EVERY DAY IV?
     Route: 042
     Dates: start: 20220505, end: 20220507

REACTIONS (1)
  - Rash [None]

NARRATIVE: CASE EVENT DATE: 20220508
